FAERS Safety Report 7341081-5 (Version None)
Quarter: 2011Q1

REPORT INFORMATION
  Report Type: 
  Country: None (occurrence: None)
  Receive Date: 20110309
  Receipt Date: 20110302
  Transmission Date: 20110831
  Serious: Yes (Hospitalization, Congenital Anomaly)
  Sender: FDA-Public Use
  Company Number: A0699357A

PATIENT
  Sex: Male

DRUGS (3)
  1. PAROXETINE HYDROCHLORIDE [Suspect]
     Route: 064
     Dates: start: 20031013, end: 20031219
  2. PAXIL [Suspect]
     Indication: DEPRESSION
     Route: 064
     Dates: start: 20020325
  3. PAXIL CR [Suspect]
     Route: 064
     Dates: start: 20040107, end: 20050326

REACTIONS (6)
  - PERSISTENT FOETAL CIRCULATION [None]
  - SPEECH DISORDER DEVELOPMENTAL [None]
  - DRUG EXPOSURE DURING PREGNANCY [None]
  - DEVELOPMENTAL DELAY [None]
  - TALIPES [None]
  - ATRIAL SEPTAL DEFECT [None]
